FAERS Safety Report 11205470 (Version 1)
Quarter: 2015Q2

REPORT INFORMATION
  Report Type: Spontaneous
  Country: US (occurrence: None)
  Receive Date: 20150618
  Receipt Date: 20150618
  Transmission Date: 20150821
  Serious: Yes (Life-Threatening)
  Sender: FDA-Public Use
  Company Number: None

PATIENT
  Age: 84 Year
  Sex: Female
  Weight: 70.76 kg

DRUGS (9)
  1. POTASSIUM [Concomitant]
     Active Substance: POTASSIUM
  2. LASIX [Concomitant]
     Active Substance: FUROSEMIDE
  3. ZAROXOLYN [Suspect]
     Active Substance: METOLAZONE
     Indication: PULMONARY HYPERTENSION
     Route: 048
     Dates: start: 20150529, end: 20150531
  4. TOPROL XL [Concomitant]
     Active Substance: METOPROLOL SUCCINATE
  5. CARDIZEM [Concomitant]
     Active Substance: DILTIAZEM HYDROCHLORIDE
  6. MAGOX [Concomitant]
  7. TIKOSYN [Suspect]
     Active Substance: DOFETILIDE
     Indication: ATRIAL FIBRILLATION
     Dosage: 1 PILL
     Route: 048
  8. ZAROXOLYN [Suspect]
     Active Substance: METOLAZONE
     Indication: PERIPHERAL SWELLING
     Route: 048
     Dates: start: 20150529, end: 20150531
  9. TIKOSYN [Suspect]
     Active Substance: DOFETILIDE
     Indication: CARDIAC PACEMAKER INSERTION
     Dosage: 1 PILL
     Route: 048

REACTIONS (7)
  - Electrocardiogram QT prolonged [None]
  - Hypovolaemia [None]
  - Hyponatraemia [None]
  - Blood potassium decreased [None]
  - Dysarthria [None]
  - Confusional state [None]
  - Blood magnesium decreased [None]

NARRATIVE: CASE EVENT DATE: 20150529
